FAERS Safety Report 16771979 (Version 4)
Quarter: 2023Q1

REPORT INFORMATION
  Report Type: Spontaneous
  Country: US (occurrence: US)
  Receive Date: 20190904
  Receipt Date: 20230117
  Transmission Date: 20230418
  Serious: No
  Sender: FDA-Public Use
  Company Number: US-BAYER-2019-162547

PATIENT
  Age: 61 Year
  Sex: Female

DRUGS (1)
  1. CLIMARA [Suspect]
     Active Substance: ESTRADIOL
     Indication: Hormone replacement therapy
     Dosage: UNK
     Route: 062
     Dates: start: 1997

REACTIONS (5)
  - Headache [Not Recovered/Not Resolved]
  - Product adhesion issue [None]
  - Wrong technique in product usage process [None]
  - Application site discomfort [None]
  - Product availability issue [None]

NARRATIVE: CASE EVENT DATE: 20190801
